FAERS Safety Report 5885820-9 (Version None)
Quarter: 2008Q3

REPORT INFORMATION
  Report Type: 
  Country: None (occurrence: None)
  Receive Date: 20080915
  Receipt Date: 20080915
  Transmission Date: 20090109
  Serious: Yes (Hospitalization)
  Sender: FDA-Public Use
  Company Number: None

PATIENT

DRUGS (3)
  1. NEUTRA-PHOS [Suspect]
     Dosage: POWDER
  2. NEUTRA-PHOS-K [Suspect]
     Dosage: POWDER
  3. K-PHOS NEUTRAL [Suspect]
     Dosage: TABLET

REACTIONS (1)
  - MEDICATION ERROR [None]
